FAERS Safety Report 5855672-1 (Version None)
Quarter: 2008Q3

REPORT INFORMATION
  Report Type: 
  Country: None (occurrence: None)
  Receive Date: 20080823
  Receipt Date: 20080818
  Transmission Date: 20090109
  Serious: Yes (Death)
  Sender: FDA-Public Use
  Company Number: US-ELI_LILLY_AND_COMPANY-US200803000682

PATIENT
  Sex: Female

DRUGS (6)
  1. BYETTA [Suspect]
     Indication: TYPE 2 DIABETES MELLITUS
     Dosage: 5 UG, 2/D
     Route: 058
     Dates: start: 20060101, end: 20060101
  2. BYETTA [Suspect]
     Dosage: 10 UG, 2/D
     Route: 058
     Dates: start: 20060101
  3. CARDIZEM [Concomitant]
  4. DIURETICS [Concomitant]
     Indication: FLUID RETENTION
  5. ANTIHYPERTENSIVES [Concomitant]
     Indication: BLOOD PRESSURE
  6. ANTI-DIABETICS [Concomitant]
     Indication: DIABETES MELLITUS
     Route: 048

REACTIONS (3)
  - CARDIAC ARREST [None]
  - IMPLANTABLE DEFIBRILLATOR MALFUNCTION [None]
  - MYOCARDIAL INFARCTION [None]
